FAERS Safety Report 4592785-9 (Version None)
Quarter: 2005Q1

REPORT INFORMATION
  Report Type: 
  Country: None (occurrence: None)
  Receive Date: 20050222
  Receipt Date: 20050215
  Transmission Date: 20050727
  Serious: Yes (Life-Threatening, Hospitalization, Other)
  Sender: FDA-Public Use
  Company Number: FRWYE140325OCT04

PATIENT
  Age: 61 Year
  Sex: Female

DRUGS (5)
  1. BISOPROLOL FUMARATE [Suspect]
     Dosage: 10 MG 1X PER 1 DAY, ORAL
     Route: 048
     Dates: end: 20040905
  2. ADEFOVIR DIPIVBOXIL (ADEFOVIR DIPIVOXIL, 0) [Suspect]
     Dosage: 10 MG 1X PER 1 DAY, ORAL
     Route: 048
     Dates: start: 20040312
  3. FUROSEMIDE [Suspect]
     Dosage: ORAL
     Route: 048
  4. TOCO (TOCOPHERYL ACETATE,  , 1) [Suspect]
     Dosage: ORAL
     Route: 048
     Dates: end: 20040905
  5. ZEFFIX (LAMIVUDINE,  , 0) [Suspect]
     Dosage: ORAL
     Route: 048
     Dates: start: 20000816

REACTIONS (9)
  - APHASIA [None]
  - ATRIAL FIBRILLATION [None]
  - HEMIPARESIS [None]
  - ISCHAEMIC CEREBRAL INFARCTION [None]
  - MALAISE [None]
  - MYOCARDIAL ISCHAEMIA [None]
  - PALPITATIONS [None]
  - PULMONARY EMBOLISM [None]
  - TACHYCARDIA [None]
